FAERS Safety Report 18984958 (Version 1)
Quarter: 2021Q1

REPORT INFORMATION
  Report Type: Other
  Country: GB (occurrence: GB)
  Receive Date: 20210309
  Receipt Date: 20210309
  Transmission Date: 20210420
  Serious: Yes (Hospitalization)
  Sender: FDA-Public Use
  Company Number: GB-CELLTRION INC.-2021GB002715

PATIENT

DRUGS (1)
  1. RITUXIMAB (UNKNOWN) [Suspect]
     Active Substance: RITUXIMAB
     Indication: PRODUCT USED FOR UNKNOWN INDICATION
     Dosage: UNK
     Route: 065

REACTIONS (10)
  - Anaphylactic shock [Unknown]
  - Aphonia [Unknown]
  - Pharyngeal swelling [Unknown]
  - Cardiac disorder [Unknown]
  - Vision blurred [Unknown]
  - Lethargy [Unknown]
  - Mouth swelling [Unknown]
  - Balance disorder [Unknown]
  - Swelling face [Unknown]
  - Unevaluable event [Unknown]
